FAERS Safety Report 7596298-1 (Version None)
Quarter: 2011Q3

REPORT INFORMATION
  Report Type: 
  Country: None (occurrence: None)
  Receive Date: 20110707
  Receipt Date: 20110623
  Transmission Date: 20111222
  Serious: Yes (Hospitalization)
  Sender: FDA-Public Use
  Company Number: US-MYLANLABS-2011S1013446

PATIENT
  Age: 35 Year
  Sex: Female

DRUGS (7)
  1. LITHIUM CARBONATE [Suspect]
     Indication: PSYCHOTIC DISORDER
     Route: 048
  2. PERPHENAZINE [Suspect]
     Indication: PSYCHOTIC DISORDER
     Route: 048
  3. HALOPERIDOL [Suspect]
     Indication: AGITATION
     Route: 048
  4. VALPROIC ACID [Concomitant]
     Dosage: AT BEDTIME
     Route: 048
  5. BENZTROPINE MESYLATE [Suspect]
     Indication: EXTRAPYRAMIDAL DISORDER
     Route: 048
  6. RISPERIDONE [Suspect]
     Indication: PSYCHOTIC DISORDER
     Route: 048
  7. OLANZAPINE [Suspect]
     Indication: PSYCHOTIC DISORDER
     Route: 048

REACTIONS (1)
  - ILEUS PARALYTIC [None]
